FAERS Safety Report 8477038-0 (Version None)
Quarter: 2012Q2

REPORT INFORMATION
  Report Type: 
  Country: None (occurrence: None)
  Receive Date: 20120629
  Receipt Date: 20120620
  Transmission Date: 20120825
  Serious: Yes (Hospitalization)
  Sender: FDA-Public Use
  Company Number: IT-BAYER-2012-061201

PATIENT
  Age: 39 Year
  Sex: Female

DRUGS (1)
  1. ASPIRIN [Suspect]
     Indication: ISCHAEMIC HEART DISEASE PROPHYLAXIS
     Dosage: 100 MG, ONCE
     Route: 048
     Dates: start: 20120531, end: 20120531

REACTIONS (2)
  - FACE OEDEMA [None]
  - SKIN REACTION [None]
